FAERS Safety Report 6379275-8 (Version None)
Quarter: 2009Q3

REPORT INFORMATION
  Report Type: 
  Country: None (occurrence: None)
  Receive Date: 20090923
  Receipt Date: 20090923
  Transmission Date: 20100115
  Serious: Yes (Life-Threatening)
  Sender: FDA-Public Use
  Company Number: None

PATIENT
  Sex: Male
  Weight: 84.1 kg

DRUGS (10)
  1. HEPARIN [Suspect]
     Indication: DEEP VEIN THROMBOSIS
     Dosage: TITRATED DRIP IV
     Route: 042
     Dates: start: 20081017, end: 20081029
  2. DEXAMETHASONE [Concomitant]
  3. FUROSEMIDE [Concomitant]
  4. HYDROCHLOROTHIAZIDE [Concomitant]
  5. LINEZOLID [Concomitant]
  6. OXYBUTYNIN CHLORIDE [Concomitant]
  7. TEMAZEPAM [Concomitant]
  8. ONDANSETRON [Concomitant]
  9. INSULIN ASPART SS [Concomitant]
  10. HYDROMORPHONE [Concomitant]

REACTIONS (2)
  - DEEP VEIN THROMBOSIS [None]
  - HEPARIN-INDUCED THROMBOCYTOPENIA [None]
